FAERS Safety Report 4407942-1 (Version None)
Quarter: 2004Q3

REPORT INFORMATION
  Report Type: 
  Country: None (occurrence: None)
  Receive Date: 20040721
  Receipt Date: 20040701
  Transmission Date: 20050211
  Serious: No
  Sender: FDA-Public Use
  Company Number: A02200400231

PATIENT
  Age: 35 Year
  Sex: Female

DRUGS (6)
  1. PLAQUENIL [Suspect]
     Indication: SYSTEMIC LUPUS ERYTHEMATOSUS
     Dosage: 400 MG QD
     Route: 048
     Dates: start: 19990101, end: 20040128
  2. PLAQUENIL [Suspect]
     Indication: SYSTEMIC LUPUS ERYTHEMATOSUS
     Dosage: 400 MG QD
     Route: 048
     Dates: start: 20040101
  3. TOLEXINE (DOXYCYCLINE) [Concomitant]
  4. IMPLANON (ETONOGESTREL) [Concomitant]
  5. ZYRTEC [Concomitant]
  6. FORLAX (MACROGOL) [Concomitant]

REACTIONS (1)
  - MELANOSIS COLI [None]
